FAERS Safety Report 22630475 (Version 1)
Quarter: 2023Q2

REPORT INFORMATION
  Report Type: Spontaneous
  Country: TW (occurrence: TW)
  Receive Date: 20230622
  Receipt Date: 20230622
  Transmission Date: 20230721
  Serious: Yes (Hospitalization, Other)
  Sender: FDA-Public Use
  Company Number: TW-PFIZER INC-PV202300108818

PATIENT
  Age: 67 Year
  Sex: Male

DRUGS (5)
  1. XELJANZ XR [Suspect]
     Active Substance: TOFACITINIB CITRATE
     Indication: Rheumatoid arthritis
     Dosage: 11 MG, 1X/DAY
     Route: 048
     Dates: start: 20200707, end: 20230330
  2. FULPHILA [Concomitant]
     Active Substance: PEGFILGRASTIM-JMDB
     Dosage: 6 MG
  3. SULFASALAZINE [Concomitant]
     Active Substance: SULFASALAZINE
     Dosage: 2 MG, DAILY
  4. SINGULAIR [Concomitant]
     Active Substance: MONTELUKAST SODIUM
     Dosage: 10 MG/TAB
  5. SICAN [Concomitant]
     Dosage: 150 MG/CAP

REACTIONS (2)
  - B-cell lymphoma [Recovering/Resolving]
  - Arteriosclerosis coronary artery [Recovering/Resolving]
